FAERS Safety Report 16387359 (Version 2)
Quarter: 2019Q3

REPORT INFORMATION
  Report Type: Spontaneous
  Country: US (occurrence: US)
  Receive Date: 20190604
  Receipt Date: 20190813
  Transmission Date: 20191004
  Serious: Yes (Hospitalization, Other)
  Sender: FDA-Public Use
  Company Number: US-SA-2019SA150061

PATIENT
  Age: 43 Year
  Sex: Female

DRUGS (2)
  1. DUPIXENT [Suspect]
     Active Substance: DUPILUMAB
     Dosage: 300 MG, QOW
     Route: 058
     Dates: start: 2019
  2. DUPIXENT [Suspect]
     Active Substance: DUPILUMAB
     Indication: ASTHMA
     Dosage: 600 MG, 1X
     Route: 058
     Dates: start: 20190417, end: 20190417

REACTIONS (11)
  - Pyrexia [Recovered/Resolved]
  - Cardiac ablation [Unknown]
  - Dyspnoea [Recovering/Resolving]
  - Status asthmaticus [Unknown]
  - Asthma [Recovering/Resolving]
  - Product use issue [Unknown]
  - Asthma [Unknown]
  - Lactic acidosis [Recovering/Resolving]
  - Injection site swelling [Unknown]
  - Respiratory distress [Recovering/Resolving]
  - Nasopharyngitis [Recovering/Resolving]

NARRATIVE: CASE EVENT DATE: 201904
